FAERS Safety Report 8612598 (Version 3)
Quarter: 2014Q3

REPORT INFORMATION
  Report Type: Report from Study
  Country: IL (occurrence: IL)
  Receive Date: 20120613
  Receipt Date: 20140717
  Transmission Date: 20150326
  Serious: Yes (Hospitalization)
  Sender: FDA-Public Use
  Company Number: IL-GLAXOSMITHKLINE-B0807828A

PATIENT
  Age: 58 Year
  Sex: Female
  Weight: 72 kg

DRUGS (2)
  1. DEXACORT [Concomitant]
     Active Substance: DEXAMETHASONE SODIUM PHOSPHATE
     Indication: NAUSEA
     Dosage: 4MG PER DAY
     Route: 048
     Dates: start: 20120515, end: 20120515
  2. PAZOPANIB [Suspect]
     Active Substance: PAZOPANIB
     Indication: SARCOMA
     Dosage: 800MG PER DAY
     Route: 048
     Dates: start: 20120503

REACTIONS (3)
  - Vomiting [Recovered/Resolved]
  - Diarrhoea [Recovered/Resolved]
  - Hyponatraemia [Recovered/Resolved]

NARRATIVE: CASE EVENT DATE: 20120514
